FAERS Safety Report 10365963 (Version 1)
Quarter: 2014Q3

REPORT INFORMATION
  Report Type: Spontaneous
  Country: US (occurrence: None)
  Receive Date: 20140805
  Receipt Date: 20140805
  Transmission Date: 20150326
  Serious: No
  Sender: FDA-Public Use
  Company Number: None

PATIENT
  Age: 70 Year
  Sex: Female
  Weight: 64.86 kg

DRUGS (4)
  1. METRONIDAZOLE. [Suspect]
     Active Substance: METRONIDAZOLE
     Indication: COLITIS
     Dosage: 3 TIMES EA DAY --  TAKEN BY MOUTH
     Route: 048
     Dates: start: 20140714, end: 20140719
  2. METRONIDAZOLE. [Suspect]
     Active Substance: METRONIDAZOLE
     Indication: DIARRHOEA
     Dosage: 3 TIMES EA DAY --  TAKEN BY MOUTH
     Route: 048
     Dates: start: 20140714, end: 20140719
  3. METRONIDAZOLE. [Suspect]
     Active Substance: METRONIDAZOLE
     Indication: PYREXIA
     Dosage: 3 TIMES EA DAY --  TAKEN BY MOUTH
     Route: 048
     Dates: start: 20140714, end: 20140719
  4. METRONIDAZOLE. [Suspect]
     Active Substance: METRONIDAZOLE
     Indication: PAIN
     Dosage: 3 TIMES EA DAY --  TAKEN BY MOUTH
     Route: 048
     Dates: start: 20140714, end: 20140719

REACTIONS (1)
  - Myalgia [None]

NARRATIVE: CASE EVENT DATE: 20140717
